FAERS Safety Report 7022571-1 (Version None)
Quarter: 2010Q3

REPORT INFORMATION
  Report Type: 
  Country: None (occurrence: None)
  Receive Date: 20100930
  Receipt Date: 20100923
  Transmission Date: 20110219
  Serious: Yes (Other)
  Sender: FDA-Public Use
  Company Number: US-BAYER-201034551NA

PATIENT
  Age: 69 Year
  Sex: Female
  Weight: 54 kg

DRUGS (4)
  1. ULTRAVIST (PHARMACY BULK) [Suspect]
     Indication: COMPUTERISED TOMOGRAM ABDOMEN
     Dosage: TOTAL DAILY DOSE: 82 ML  UNIT DOSE: 200 ML
     Route: 042
     Dates: start: 20100923, end: 20100923
  2. AVAPRO [Concomitant]
  3. EVISTA [Concomitant]
  4. VOLUMEN [Concomitant]
     Indication: COMPUTERISED TOMOGRAM ABDOMEN
     Route: 048
     Dates: start: 20100923, end: 20100923

REACTIONS (2)
  - HYPERTENSION [None]
  - NAUSEA [None]
